FAERS Safety Report 7089739-X (Version None)
Quarter: 2010Q4

REPORT INFORMATION
  Report Type: 
  Country: None (occurrence: None)
  Receive Date: 20101108
  Receipt Date: 20101102
  Transmission Date: 20110411
  Serious: Yes (Other)
  Sender: FDA-Public Use
  Company Number: IN-PFIZER INC-2010139891

PATIENT
  Age: 62 Year
  Sex: Female

DRUGS (1)
  1. DAXID [Suspect]
     Route: 048

REACTIONS (3)
  - FALL [None]
  - HIP FRACTURE [None]
  - SEDATION [None]
